FAERS Safety Report 6216570-7 (Version None)
Quarter: 2009Q2

REPORT INFORMATION
  Report Type: 
  Country: None (occurrence: None)
  Receive Date: 20090605
  Receipt Date: 20090527
  Transmission Date: 20091009
  Serious: Yes (Death, Hospitalization)
  Sender: FDA-Public Use
  Company Number: JP-ABBOTT-09P-087-0568014-00

PATIENT
  Sex: Male

DRUGS (17)
  1. HUMIRA [Suspect]
     Indication: RHEUMATOID ARTHRITIS
     Route: 058
     Dates: start: 20080929, end: 20081218
  2. HUMIRA [Suspect]
     Dates: start: 20090113, end: 20090324
  3. PREDNISOLONE [Suspect]
     Indication: RHEUMATOID ARTHRITIS
     Route: 048
     Dates: start: 20080117
  4. PREDNISOLONE [Suspect]
     Dosage: DAILY
     Route: 048
     Dates: start: 20080929, end: 20081009
  5. PREDNISOLONE [Suspect]
     Dosage: DAILY
     Route: 048
     Dates: start: 20081010, end: 20081023
  6. PREDNISOLONE [Suspect]
     Route: 048
     Dates: start: 20081024
  7. METHOTREXATE [Suspect]
     Indication: RHEUMATOID ARTHRITIS
     Route: 048
     Dates: start: 20081218
  8. METHOTREXATE [Concomitant]
     Route: 048
     Dates: start: 20081218
  9. MOSAPRIDE CITRATE HYDRATE [Concomitant]
     Indication: GASTRITIS
     Route: 048
     Dates: start: 20080501
  10. ISONIAZID [Concomitant]
     Indication: ANTIBIOTIC PROPHYLAXIS
     Route: 048
     Dates: start: 20080825
  11. CELECOXIB [Concomitant]
     Indication: FRACTURE
     Dosage: DAILY DOSE: 200 MILLIGRAMS
     Dates: start: 20090121, end: 20090131
  12. MISOPROSTOL [Concomitant]
     Indication: GASTRITIS
     Dosage: DAILY DOSE: 200 MILLIGRAMS
     Dates: start: 20090121, end: 20090131
  13. ZOLPIDEM TARTRATE [Concomitant]
     Indication: INSOMNIA
     Dosage: DAILY DOSE: 5 MILLIGRAMS
     Dates: start: 20090124, end: 20090201
  14. L-CARBOCISTEINE [Concomitant]
     Indication: SINUSITIS
     Dosage: DAILY DOSE: 750 MILLIGRAMS
     Dates: start: 20090129
  15. ALFACALCIDOL [Concomitant]
     Indication: OSTEOPOROSIS
     Dosage: DAILY DOSE: 0.5 MICROGRAMS
     Dates: start: 20090129
  16. MONTELUKAST SODIUM [Concomitant]
     Indication: RHINITIS
     Dosage: DAILY DOSE: 10 MILLIGRAMS
     Dates: start: 20090216
  17. POLYGAM S/D [Concomitant]
     Indication: DRUG USE FOR UNKNOWN INDICATION
     Dates: start: 20090414, end: 20090417

REACTIONS (4)
  - PLEURAL EFFUSION [None]
  - PNEUMONIA [None]
  - SEPSIS [None]
  - SUBCUTANEOUS EMPHYSEMA [None]
